FAERS Safety Report 21591691 (Version 1)
Quarter: 2022Q4

REPORT INFORMATION
  Report Type: Spontaneous
  Country: FR (occurrence: FR)
  Receive Date: 20221114
  Receipt Date: 20221114
  Transmission Date: 20230112
  Serious: Yes (Other)
  Sender: FDA-Public Use
  Company Number: None

PATIENT
  Age: 57 Year
  Sex: Female
  Weight: 76 kg

DRUGS (14)
  1. IRINOTECAN [Suspect]
     Active Substance: IRINOTECAN
     Indication: Rectal adenocarcinoma
     Route: 042
     Dates: start: 20220921, end: 20220921
  2. IRINOTECAN [Suspect]
     Active Substance: IRINOTECAN
     Route: 042
     Dates: start: 20221025, end: 20221025
  3. IRINOTECAN [Suspect]
     Active Substance: IRINOTECAN
     Route: 042
     Dates: start: 20221005, end: 20221005
  4. OXALIPLATIN [Suspect]
     Active Substance: OXALIPLATIN
     Indication: Rectal adenocarcinoma
     Dosage: UNIT DOSE - 150 MILLIGRAM?ROA-20045000
     Route: 042
     Dates: end: 20221005
  5. OXALIPLATIN [Suspect]
     Active Substance: OXALIPLATIN
     Dosage: UNIT DOSE - 150 MILLIGRAMS?ROA-20045000
     Route: 042
     Dates: start: 20220921, end: 20220921
  6. FILGRASTIM [Suspect]
     Active Substance: FILGRASTIM
     Indication: Rectal adenocarcinoma
     Dosage: ROA-20066000
     Route: 058
     Dates: start: 20220924, end: 20220927
  7. FILGRASTIM [Suspect]
     Active Substance: FILGRASTIM
     Dosage: ROA-20066000
     Route: 058
     Dates: start: 20221006, end: 20221008
  8. FLUOROURACIL [Suspect]
     Active Substance: FLUOROURACIL
     Indication: Rectal adenocarcinoma
     Dosage: CONCESSION DOSE 30 PERCENT INFUSER OVER 48H?UNIT DOSE - 2950 MILLIGRAM?ROA-20045000
     Route: 042
     Dates: end: 20221027
  9. FLUOROURACIL [Suspect]
     Active Substance: FLUOROURACIL
     Dosage: CONCESSION DOSE 30 PERCENT INFUSER OVER 48H?UNIT DOSE - 2950 MILLIGRAM?ROA-20045000
     Route: 042
     Dates: start: 20221005, end: 20221007
  10. FLUOROURACIL [Suspect]
     Active Substance: FLUOROURACIL
     Dosage: CONCESSION DOSE 30 PERCENT INFUSER OVER 48H?UNIT DOSE - 2950 MILLIGRAMS?ROA-20045000
     Route: 042
     Dates: start: 20220921, end: 20220923
  11. DOLIPRANE 1000 mg, capsule [Concomitant]
     Indication: Pain
     Dosage: 1G EVERY 6H IF PAIN?ROA-20053000
     Route: 048
  12. LEVOLEUCOVORIN CALCIUM [Concomitant]
     Active Substance: LEVOLEUCOVORIN CALCIUM
     Indication: Rectal adenocarcinoma
     Dosage: UNIT DOSE - 350 MILLIGRAM?ROA-20045000
     Route: 042
     Dates: start: 20220921, end: 20220921
  13. LEVOLEUCOVORIN CALCIUM [Concomitant]
     Active Substance: LEVOLEUCOVORIN CALCIUM
     Dosage: UNIT DOSE - 350 MILLIGRAM?ROA-20045000
     Route: 042
     Dates: start: 20221025, end: 20221025
  14. LEVOLEUCOVORIN CALCIUM [Concomitant]
     Active Substance: LEVOLEUCOVORIN CALCIUM
     Dosage: UNIT DOSE - 350 MILLIGRAM?ROA-20045000
     Route: 042
     Dates: start: 20221005, end: 20221005

REACTIONS (1)
  - Hepatic cytolysis [Recovering/Resolving]

NARRATIVE: CASE EVENT DATE: 20221004
